FAERS Safety Report 11401973 (Version 1)
Quarter: 2015Q3

REPORT INFORMATION
  Report Type: Spontaneous
  Country: None (occurrence: None)
  Receive Date: 20150820
  Receipt Date: 20150820
  Transmission Date: 20151125
  Serious: No
  Sender: FDA-Public Use
  Company Number: None

PATIENT
  Age: 58 Year
  Sex: Female

DRUGS (1)
  1. VALGANCICLOVIR [Suspect]
     Active Substance: VALGANCICLOVIR
     Indication: RENAL TRANSPLANT
     Dosage: ONE TAB, TWIVE A WEEK, ORAL
     Route: 048

REACTIONS (2)
  - Swelling face [None]
  - Peripheral swelling [None]

NARRATIVE: CASE EVENT DATE: 20150819
